FAERS Safety Report 9836002 (Version 4)
Quarter: 2014Q1

REPORT INFORMATION
  Report Type: Spontaneous
  Country: US (occurrence: US)
  Receive Date: 20140122
  Receipt Date: 20140224
  Transmission Date: 20141002
  Serious: Yes (Hospitalization)
  Sender: FDA-Public Use
  Company Number: US-ACTELION-A-US2014-93598

PATIENT
  Age: 69 Year
  Sex: Female

DRUGS (2)
  1. VELETRI [Suspect]
     Indication: PULMONARY ARTERIAL HYPERTENSION
     Dosage: 25 NG/KG, PER MIN
     Route: 042
     Dates: start: 20131129, end: 20140122
  2. SILDENAFIL [Concomitant]

REACTIONS (6)
  - Upper respiratory tract infection [Recovering/Resolving]
  - Pulmonary hypertension [Unknown]
  - Device difficult to use [Recovering/Resolving]
  - Dyspnoea [Recovering/Resolving]
  - Dyspnoea exertional [Recovering/Resolving]
  - Nausea [Recovering/Resolving]
